FAERS Safety Report 5083646-X (Version None)
Quarter: 2006Q3

REPORT INFORMATION
  Report Type: 
  Country: None (occurrence: None)
  Receive Date: 20060816
  Receipt Date: 20060802
  Transmission Date: 20061208
  Serious: Yes (Hospitalization)
  Sender: FDA-Public Use
  Company Number: RENA-11868

PATIENT
  Age: 80 Year
  Sex: Male

DRUGS (1)
  1. RENAGEL [Suspect]
     Indication: HYPERPHOSPHATAEMIA
     Dosage: 3200 MG TID PO
     Route: 048
     Dates: start: 20050901

REACTIONS (3)
  - ABSCESS [None]
  - ANORECTAL INFECTION [None]
  - PENILE INFECTION [None]
